FAERS Safety Report 8004628-1 (Version None)
Quarter: 2011Q4

REPORT INFORMATION
  Report Type: 
  Country: None (occurrence: None)
  Receive Date: 20111223
  Receipt Date: 20111215
  Transmission Date: 20120403
  Serious: Yes (Disabling)
  Sender: FDA-Public Use
  Company Number: JP-JNJFOC-20110704525

PATIENT
  Age: 35 Year
  Sex: Female
  Weight: 52 kg

DRUGS (14)
  1. REMICADE [Suspect]
     Indication: ANKYLOSING SPONDYLITIS
     Dosage: TOTAL 6 INFUSIONS
     Route: 042
     Dates: start: 20110520
  2. PREDNISOLONE [Concomitant]
     Indication: ANKYLOSING SPONDYLITIS
     Route: 048
     Dates: start: 20110127, end: 20110224
  3. REMICADE [Suspect]
     Route: 042
     Dates: start: 20101018
  4. ISONIAZID [Concomitant]
     Indication: ANTIBIOTIC PROPHYLAXIS
     Route: 065
     Dates: start: 20101019
  5. REMICADE [Suspect]
     Route: 042
     Dates: start: 20110325
  6. PYRIDOXAL PHOSPHATE [Concomitant]
     Indication: PROPHYLAXIS
     Route: 048
     Dates: start: 20101019
  7. PREDNISOLONE [Concomitant]
     Route: 048
     Dates: start: 20101105, end: 20101202
  8. PREDNISOLONE [Concomitant]
     Route: 048
     Dates: end: 20101104
  9. AZULFIDINE [Concomitant]
     Indication: ANKYLOSING SPONDYLITIS
     Route: 048
  10. REMICADE [Suspect]
     Route: 042
     Dates: start: 20110128
  11. REMICADE [Suspect]
     Route: 042
     Dates: start: 20101105
  12. REMICADE [Suspect]
     Route: 042
     Dates: start: 20101203
  13. PREDNISOLONE [Concomitant]
     Route: 048
     Dates: start: 20101203, end: 20110126
  14. MOHRUS TAPE [Concomitant]
     Indication: ANKYLOSING SPONDYLITIS
     Route: 003

REACTIONS (1)
  - UVEITIS [None]
